FAERS Safety Report 18252299 (Version 3)
Quarter: 2021Q1

REPORT INFORMATION
  Report Type: Spontaneous
  Country: US (occurrence: US)
  Receive Date: 20200910
  Receipt Date: 20210315
  Transmission Date: 20210419
  Serious: No
  Sender: FDA-Public Use
  Company Number: US-FARMAPROD-202006-0765

PATIENT
  Sex: Female
  Weight: 103 kg

DRUGS (18)
  1. VITAMINE D [Concomitant]
     Active Substance: CHOLECALCIFEROL
  2. TEARS [Concomitant]
     Active Substance: LANOLIN\PARAFFIN
     Indication: MEIBOMIAN GLAND DYSFUNCTION
     Route: 061
  3. WARFARIN SODIUM. [Concomitant]
     Active Substance: WARFARIN SODIUM
  4. SIMVASTATIN. [Concomitant]
     Active Substance: SIMVASTATIN
  5. FUROSEMIDE. [Concomitant]
     Active Substance: FUROSEMIDE
  6. CARVEDILOL. [Concomitant]
     Active Substance: CARVEDILOL
  7. WARFARIN SODIUM. [Concomitant]
     Active Substance: WARFARIN SODIUM
  8. LOSARTAN POTASSIUM. [Concomitant]
     Active Substance: LOSARTAN POTASSIUM
  9. METFORMIN HCL [Concomitant]
     Active Substance: METFORMIN HYDROCHLORIDE
  10. GLIMEPIRIDE. [Concomitant]
     Active Substance: GLIMEPIRIDE
  11. RETAINE [Concomitant]
     Active Substance: HYPROMELLOSE 2910 (4000 MPA.S)
  12. OXERVATE [Suspect]
     Active Substance: CENEGERMIN-BKBJ
     Indication: NEUROTROPHIC KERATOPATHY
     Route: 047
     Dates: start: 20200521, end: 20200720
  13. POTASSIUM [Concomitant]
     Active Substance: POTASSIUM
     Dosage: 595(99)MG
  14. ASPIRINE [Concomitant]
     Active Substance: ASPIRIN
  15. TYLENOL 8HR [Concomitant]
     Active Substance: ACETAMINOPHEN
  16. FEBUXOSTAT. [Concomitant]
     Active Substance: FEBUXOSTAT
  17. VITA?POS [Concomitant]
     Dosage: AT NIGHT
  18. TEARS [Concomitant]
     Active Substance: LANOLIN\PARAFFIN
     Indication: DRY EYE

REACTIONS (6)
  - Eye colour change [Unknown]
  - Product dose omission issue [Unknown]
  - Eyelid pain [Unknown]
  - Dry eye [Unknown]
  - Eye pain [Recovered/Resolved]
  - Eye irritation [Unknown]
